FAERS Safety Report 9228322 (Version 1)
Quarter: 2013Q2

REPORT INFORMATION
  Report Type: Spontaneous
  Country: US (occurrence: US)
  Receive Date: 20130412
  Receipt Date: 20130412
  Transmission Date: 20140414
  Serious: Yes (Other)
  Sender: FDA-Public Use
  Company Number: US-ACTAVIS-2013-05867

PATIENT
  Age: 42 Year
  Sex: Male

DRUGS (6)
  1. OXYCODONE (UNKNOWN) [Suspect]
     Indication: BACK PAIN
     Dosage: 80 MG, TID, EXTENDED-RELEASE
     Route: 065
  2. OXYCODONE (UNKNOWN) [Suspect]
     Dosage: 60 MG, TID, EXTENDED-RELEASE
     Route: 065
  3. HYDROMORPHONE HYDROCHLORIDE (UNKNOWN) [Suspect]
     Indication: BACK PAIN
     Dosage: 8 MG, DAILY, EACH MORNING, EXTENDED-RELEASE
     Route: 065
  4. HYDROCODONE-ACETAMINOPHEN (WATSON LABORATORIES) [Suspect]
     Indication: BACK PAIN
     Dosage: 10 MG/325 MG NOT TO EXCEED 6/DAY
     Route: 065
  5. GABAPENTIN (UNKNOWN) [Suspect]
     Indication: BACK PAIN
     Dosage: 400 MG, TID
     Route: 065
  6. TRAZODONE [Concomitant]
     Indication: SLEEP DISORDER
     Dosage: 100 MG, UNKNOWN
     Route: 065

REACTIONS (3)
  - Pain [Recovered/Resolved]
  - Drug tolerance [Unknown]
  - Drug ineffective [Recovered/Resolved]
